FAERS Safety Report 7603591-2 (Version None)
Quarter: 2011Q3

REPORT INFORMATION
  Report Type: 
  Country: None (occurrence: None)
  Receive Date: 20110711
  Receipt Date: 20110711
  Transmission Date: 20111222
  Serious: Yes (Death)
  Sender: FDA-Public Use
  Company Number: None

PATIENT
  Age: 72 Year
  Sex: Female

DRUGS (3)
  1. MOXIFLOXACIN [Concomitant]
  2. NORCO (ACETAMINOPHEN/HYDROCODONE) [Concomitant]
  3. REVLIMID [Suspect]
     Indication: CHRONIC LYMPHOCYTIC LEUKAEMIA
     Dosage: 10MG DAILY ORALLY
     Route: 048
     Dates: start: 20100901, end: 20110201

REACTIONS (1)
  - UPPER RESPIRATORY TRACT INFECTION [None]
